FAERS Safety Report 8479878-0 (Version None)
Quarter: 2012Q2

REPORT INFORMATION
  Report Type: 
  Country: None (occurrence: None)
  Receive Date: 20120629
  Receipt Date: 20120619
  Transmission Date: 20120825
  Serious: Yes (Other)
  Sender: FDA-Public Use
  Company Number: JP-VERTEX PHARMACEUTICALS INC.-AE-2012-006329

PATIENT
  Age: 64 Year
  Sex: Female

DRUGS (15)
  1. TELAVIC (TELAPREVIR) [Suspect]
     Indication: HEPATITIS C
     Route: 048
     Dates: start: 20120309, end: 20120315
  2. RIBAVIRIN [Concomitant]
     Route: 048
     Dates: start: 20120323
  3. ALLOPURINOL [Concomitant]
     Route: 048
  4. PEGINTERFERON ALFA-2B [Concomitant]
     Route: 058
     Dates: start: 20120511, end: 20120601
  5. PROCHLORPERAZINE [Concomitant]
     Route: 048
     Dates: end: 20120427
  6. PEGINTERFERON ALFA-2B [Concomitant]
     Indication: HEPATITIS C
     Route: 058
     Dates: start: 20120309, end: 20120329
  7. RIBAVIRIN [Concomitant]
     Route: 048
     Dates: end: 20120601
  8. PEGINTERFERON ALFA-2B [Concomitant]
     Route: 058
     Dates: start: 20120330, end: 20120503
  9. RIBAVIRIN [Concomitant]
     Route: 048
     Dates: start: 20120319, end: 20120322
  10. PEGINTERFERON ALFA-2B [Concomitant]
     Route: 058
     Dates: start: 20120504, end: 20120510
  11. CADUET NO. 1 [Concomitant]
     Route: 048
  12. TELAVIC (TELAPREVIR) [Suspect]
     Route: 048
     Dates: start: 20120316, end: 20120517
  13. TELAVIC (TELAPREVIR) [Suspect]
     Route: 048
     Dates: start: 20120518, end: 20120601
  14. RIBAVIRIN [Concomitant]
     Indication: HEPATITIS C
     Route: 048
     Dates: start: 20120309, end: 20120318
  15. URSO 250 [Concomitant]
     Route: 048

REACTIONS (5)
  - HYPERURICAEMIA [None]
  - NAUSEA [None]
  - DECREASED APPETITE [None]
  - PLATELET COUNT DECREASED [None]
  - ANAEMIA [None]
